FAERS Safety Report 22152395 (Version 1)
Quarter: 2023Q1

REPORT INFORMATION
  Report Type: Spontaneous
  Country: CA (occurrence: CA)
  Receive Date: 20230329
  Receipt Date: 20230329
  Transmission Date: 20230418
  Serious: Yes (Other)
  Sender: FDA-Public Use
  Company Number: CA-BAXTER-2023BAX016784

PATIENT
  Age: 72 Year
  Sex: Male
  Weight: 82 kg

DRUGS (2)
  1. BUPIVACAINE [Suspect]
     Active Substance: BUPIVACAINE
     Indication: Spinal anaesthesia
     Dosage: (BUPIVACAINE HYDROCHLORIDE IN DEXTROSE INJECTION USP SINGLE DOSE) 1.8 ML, ONCE (DOSAGE FORM: SOLUTIO
     Route: 037
  2. MORPHINE SULFATE [Concomitant]
     Active Substance: MORPHINE SULFATE
     Dosage: AT AN UNSPECIFIED DOSE AND FREQUENCY (DOSAGE FORM: LIQUID EPIDURAL) (INJECTION)
     Route: 065

REACTIONS (1)
  - Anaesthetic complication [Recovered/Resolved]
